FAERS Safety Report 5246838-2 (Version None)
Quarter: 2007Q1

REPORT INFORMATION
  Report Type: 
  Country: None (occurrence: None)
  Receive Date: 20070226
  Receipt Date: 20070214
  Transmission Date: 20070707
  Serious: Yes (Hospitalization, Other)
  Sender: FDA-Public Use
  Company Number: JP-ELI_LILLY_AND_COMPANY-JP200702003570

PATIENT
  Age: 70 Year
  Sex: Female

DRUGS (6)
  1. EVISTA [Suspect]
     Indication: OSTEOPOROSIS POSTMENOPAUSAL
     Dosage: 60 MG, DAILY (1/D)
     Route: 048
     Dates: end: 20070126
  2. LASIX [Concomitant]
     Route: 048
  3. BASEN [Concomitant]
  4. PLETAL [Concomitant]
  5. AMARYL [Concomitant]
  6. ALDACTONE [Concomitant]

REACTIONS (4)
  - ASCITES [None]
  - BLOOD ALBUMIN DECREASED [None]
  - GENERALISED OEDEMA [None]
  - PLEURAL EFFUSION [None]
